FAERS Safety Report 17567572 (Version 2)
Quarter: 2020Q1

REPORT INFORMATION
  Report Type: Spontaneous
  Country: US (occurrence: US)
  Receive Date: 20200320
  Receipt Date: 20200323
  Transmission Date: 20200409
  Serious: Yes (Hospitalization, Other)
  Sender: FDA-Public Use
  Company Number: US-BAYER-2020-047107

PATIENT

DRUGS (1)
  1. AFRIN ORIGINAL [Suspect]
     Active Substance: OXYMETAZOLINE HYDROCHLORIDE
     Dosage: UNK, QD

REACTIONS (4)
  - Hypertension [Unknown]
  - Incorrect product administration duration [Recovered/Resolved]
  - Drug dependence [Recovered/Resolved]
  - Nephrolithiasis [Unknown]
